FAERS Safety Report 15884123 (Version 4)
Quarter: 2020Q1

REPORT INFORMATION
  Report Type: Spontaneous
  Country: JP (occurrence: JP)
  Receive Date: 20190129
  Receipt Date: 20200211
  Transmission Date: 20200409
  Serious: Yes (Death, Life-Threatening)
  Sender: FDA-Public Use
  Company Number: JP-ACTELION-A-CH2019-185352

PATIENT
  Age: 73 Year
  Sex: Female

DRUGS (15)
  1. OPSUMIT [Suspect]
     Active Substance: MACITENTAN
     Indication: PULMONARY ARTERIAL HYPERTENSION
     Dosage: 10 MG, QD
     Route: 048
     Dates: start: 20181213, end: 20190118
  2. ADCIRCA [Concomitant]
     Active Substance: TADALAFIL
  3. AZOSEMIDE [Concomitant]
     Active Substance: AZOSEMIDE
  4. LANSOPRAZOLE. [Concomitant]
     Active Substance: LANSOPRAZOLE
  5. ASPARA POTASSIUM [Concomitant]
     Active Substance: POTASSIUM ASPARTATE
  6. TRANSAMIN [Concomitant]
     Active Substance: TRANEXAMIC ACID
  7. AZOPT [Concomitant]
     Active Substance: BRINZOLAMIDE
  8. LATANOPROST. [Concomitant]
     Active Substance: LATANOPROST
  9. TRANEXAMIC ACID. [Concomitant]
     Active Substance: TRANEXAMIC ACID
  10. GOREISAN [Concomitant]
     Active Substance: HERBALS
  11. OXYGEN. [Concomitant]
     Active Substance: OXYGEN
  12. UPTRAVI [Concomitant]
     Active Substance: SELEXIPAG
  13. DIART [Concomitant]
     Active Substance: AZOSEMIDE
  14. SPIRONOLACTON [Concomitant]
     Active Substance: SPIRONOLACTONE
  15. SODIUM HYALURONATE [Concomitant]
     Active Substance: HYALURONATE SODIUM

REACTIONS (15)
  - Bradycardia [Fatal]
  - Decreased appetite [Not Recovered/Not Resolved]
  - Respiratory depression [Fatal]
  - Upper gastrointestinal haemorrhage [Not Recovered/Not Resolved]
  - Pneumonia [Fatal]
  - Nasopharyngitis [Not Recovered/Not Resolved]
  - Dehydration [Not Recovered/Not Resolved]
  - Headache [Fatal]
  - Oxygen saturation decreased [Fatal]
  - Myalgia [Recovering/Resolving]
  - Insomnia [Recovering/Resolving]
  - General physical health deterioration [Fatal]
  - Depressed level of consciousness [Fatal]
  - Cough [Fatal]
  - Pyrexia [Fatal]

NARRATIVE: CASE EVENT DATE: 20181220
